FAERS Safety Report 10043002 (Version 2)
Quarter: 2014Q1

REPORT INFORMATION
  Report Type: Spontaneous
  Country: PR (occurrence: PR)
  Receive Date: 20140328
  Receipt Date: 20140328
  Transmission Date: 20141002
  Serious: Yes (Hospitalization)
  Sender: FDA-Public Use
  Company Number: PR-BIOGENIDEC-2013BI113511

PATIENT
  Age: 19 Year
  Sex: Female

DRUGS (5)
  1. TYSABRI [Suspect]
     Indication: CROHN^S DISEASE
     Route: 042
     Dates: start: 20130801, end: 20130904
  2. METHOTREXATE [Concomitant]
     Indication: CROHN^S DISEASE
  3. IMURAN [Concomitant]
     Indication: CROHN^S DISEASE
  4. REMICADE [Concomitant]
     Indication: CROHN^S DISEASE
  5. HUMIRA [Concomitant]
     Indication: CROHN^S DISEASE

REACTIONS (3)
  - Stoma site haemorrhage [Unknown]
  - Crohn^s disease [Unknown]
  - Drug ineffective [Unknown]
